FAERS Safety Report 25738479 (Version 2)
Quarter: 2025Q4

REPORT INFORMATION
  Report Type: Spontaneous
  Country: US (occurrence: US)
  Receive Date: 20250829
  Receipt Date: 20251122
  Transmission Date: 20260118
  Serious: No
  Sender: MDD OPERATIONS
  Company Number: US-002147023-MDD202507-002611

PATIENT
  Age: 76 Year
  Sex: Male

DRUGS (6)
  1. ONAPGO [Suspect]
     Active Substance: APOMORPHINE HYDROCHLORIDE
     Indication: Parkinson^s disease
     Dosage: NOT PROVIDED
     Route: 058
  2. ONAPGO [Suspect]
     Active Substance: APOMORPHINE HYDROCHLORIDE
     Indication: On and off phenomenon
     Dosage: 98MG EACH DAY/ 1 CARTRIDGE UNDER THE SKIN FOR 16 HOURS OR LESS EACH DAY. CONTINUOUS DOSE (MAX 6MG/HR
     Route: 058
     Dates: start: 202507
  3. CARBIDOPA LEVODOPA [Concomitant]
     Active Substance: CARBIDOPA\LEVODOPA
     Dosage: 25MG-100MG 1 TABLET EVERY 2 HOURS STARTING FROM 07:30 AM TO 07:30 PM
  4. CARBIDOPA LEVODOPA [Concomitant]
     Active Substance: CARBIDOPA\LEVODOPA
     Dosage: 50MG-200MG 1 TABLET AT BEDTIME (AROUND 10:00 PM)
  5. AMANTADINE [Concomitant]
     Active Substance: AMANTADINE
     Dosage: 100 MG TABLET AT 07:30 AM, 01:30 PM, AND 05:30 PM.
  6. ROPINIROLE [Concomitant]
     Active Substance: ROPINIROLE
     Dosage: 2 MG TABLET AT 07:30 AM, 04:30 PM, AND BEDTIME.

REACTIONS (5)
  - Injection site mass [Unknown]
  - Headache [Recovered/Resolved]
  - Injection site erythema [Recovered/Resolved]
  - Injection site irritation [Recovered/Resolved]
  - Infusion site swelling [Recovered/Resolved]

NARRATIVE: CASE EVENT DATE: 20250701
